FAERS Safety Report 8976451 (Version 3)
Quarter: 2013Q2

REPORT INFORMATION
  Report Type: Spontaneous
  Country: US (occurrence: US)
  Receive Date: 20121220
  Receipt Date: 20130528
  Transmission Date: 20140414
  Serious: Yes (Hospitalization, Congenital Anomaly)
  Sender: FDA-Public Use
  Company Number: US-JNJFOC-20121102136

PATIENT
  Sex: Male

DRUGS (1)
  1. TOPAMAX [Suspect]
     Indication: FOETAL EXPOSURE DURING PREGNANCY
     Route: 064

REACTIONS (4)
  - Cleft lip and palate [Recovering/Resolving]
  - Nose deformity [Unknown]
  - Eustachian tube dysfunction [Unknown]
  - Otitis media chronic [Unknown]
